FAERS Safety Report 25208005 (Version 9)
Quarter: 2025Q3

REPORT INFORMATION
  Report Type: Other
  Country: US (occurrence: US)
  Receive Date: 20250417
  Receipt Date: 20250821
  Transmission Date: 20251020
  Serious: Yes (Hospitalization)
  Sender: INTERCEPT PHARMACEUTICALS
  Company Number: US-INTERCEPT-PM2025000639

PATIENT
  Age: 69 Year
  Sex: Female
  Weight: 84.5 kg

DRUGS (28)
  1. OCALIVA [Suspect]
     Active Substance: OBETICHOLIC ACID
     Indication: Primary biliary cholangitis
     Dosage: 5 MILLIGRAM, QD
     Route: 048
     Dates: start: 20250304, end: 20250321
  2. OCALIVA [Suspect]
     Active Substance: OBETICHOLIC ACID
     Dosage: 5 MILLIGRAM, QD
     Route: 048
     Dates: start: 2025, end: 202505
  3. OCALIVA [Suspect]
     Active Substance: OBETICHOLIC ACID
     Dosage: 2.5 MG, HALF PILL, QOD
     Route: 048
     Dates: start: 20250620, end: 2025
  4. OCALIVA [Suspect]
     Active Substance: OBETICHOLIC ACID
     Dosage: 5 MILLIGRAM, QD
     Route: 048
     Dates: start: 2025
  5. BREO ELLIPTA [Suspect]
     Active Substance: FLUTICASONE FUROATE\VILANTEROL TRIFENATATE
     Indication: Product used for unknown indication
     Dosage: 1 PUFF, QD
     Dates: end: 20250325
  6. ACTIGALL [Concomitant]
     Active Substance: URSODIOL
     Dosage: 300 MILLIGRAM, QD
     Route: 048
  7. VENTOLIN HFA [Concomitant]
     Active Substance: ALBUTEROL SULFATE
     Dosage: UNK, Q4H, INHALE 2 PUFFS
  8. PROVENTIL HFA [Concomitant]
     Active Substance: ALBUTEROL SULFATE
     Dosage: UNK, Q4H, UNK, Q4H, INHALE 2 PUFFS
  9. VITAMIN D3 [Concomitant]
     Active Substance: CHOLECALCIFEROL
     Dosage: 25 MICROGRAM, QD
     Route: 048
  10. VITAMIN B12 [Concomitant]
     Active Substance: CYANOCOBALAMIN
     Dosage: 100 MICROGRAM, QD
     Route: 048
  11. REPATHA [Concomitant]
     Active Substance: EVOLOCUMAB
     Indication: Type IIa hyperlipidaemia
     Route: 058
  12. FOLVITE [Concomitant]
     Active Substance: FOLIC ACID
     Dosage: 1 MILLIGRAM, QD
     Route: 048
  13. ANUSOL HC [Concomitant]
     Active Substance: HYDROCORTISONE
     Indication: Haemorrhoids
     Route: 054
     Dates: end: 20250407
  14. NIZORAL [Concomitant]
     Active Substance: KETOCONAZOLE
     Dosage: 1 APPLICATION, 2X/WK. APPLY TO DAMP SKIN, LATHER, LEAVE ON 5 MINUTES, AND RINSE
     Route: 061
  15. DELTASONE [Concomitant]
     Active Substance: PREDNISONE
     Route: 048
  16. DELTASONE [Concomitant]
     Active Substance: PREDNISONE
     Dosage: 5 MILLIGRAM, QD
     Route: 048
  17. INDERAL [Concomitant]
     Active Substance: PROPRANOLOL HYDROCHLORIDE
     Dosage: 20 MILLIGRAM, QD
     Route: 048
  18. MICARDIS HCT [Concomitant]
     Active Substance: HYDROCHLOROTHIAZIDE\TELMISARTAN
     Indication: Hypertension
     Dosage: 1 DOSAGE FORM, QD
     Route: 048
  19. KENALOG [Concomitant]
     Active Substance: TRIAMCINOLONE ACETONIDE
     Route: 061
  20. AMBIEN [Concomitant]
     Active Substance: ZOLPIDEM TARTRATE
     Dosage: 10 MILLIGRAM, QD
     Route: 048
  21. CRESTOR [Concomitant]
     Active Substance: ROSUVASTATIN CALCIUM
     Indication: Hyperlipidaemia
  22. ZEPBOUND [Concomitant]
     Active Substance: TIRZEPATIDE
  23. ZETIA [Concomitant]
     Active Substance: EZETIMIBE
     Indication: Hyperlipidaemia
  24. ALBUTEROL [Concomitant]
     Active Substance: ALBUTEROL
  25. DOXEPIN [Concomitant]
     Active Substance: DOXEPIN
  26. FOLIC ACID [Concomitant]
     Active Substance: FOLIC ACID
  27. PROPRANOLOL [Concomitant]
     Active Substance: PROPRANOLOL HYDROCHLORIDE
  28. SULFASALAZINE [Concomitant]
     Active Substance: SULFASALAZINE

REACTIONS (7)
  - Chest pain [Recovered/Resolved]
  - Diarrhoea [Recovered/Resolved]
  - Blood alkaline phosphatase abnormal [Not Recovered/Not Resolved]
  - Abdominal pain upper [Recovering/Resolving]
  - Dizziness [Unknown]
  - Off label use [Recovered/Resolved]
  - Wrong technique in product usage process [Recovered/Resolved]

NARRATIVE: CASE EVENT DATE: 20250317
